FAERS Safety Report 23461525 (Version 1)
Quarter: 2024Q1

REPORT INFORMATION
  Report Type: Report from Study
  Country: CA (occurrence: CA)
  Receive Date: 20240131
  Receipt Date: 20240131
  Transmission Date: 20240409
  Serious: Yes (Hospitalization, Other)
  Sender: FDA-Public Use
  Company Number: CA-VER-202300114

PATIENT
  Age: 70 Year
  Sex: Male

DRUGS (5)
  1. TRIPTORELIN PAMOATE [Suspect]
     Active Substance: TRIPTORELIN PAMOATE
     Indication: Prostate cancer
     Dosage: 11.25 MILLIGRAM, ONCE / 3 MONTHS
     Route: 030
     Dates: start: 20221123, end: 20221123
  2. TRIPTORELIN PAMOATE [Suspect]
     Active Substance: TRIPTORELIN PAMOATE
     Indication: Prostate cancer
     Dosage: 11.25 MILLIGRAM, ONCE / 3 MONTHS
     Route: 030
     Dates: start: 20230216, end: 20230216
  3. TRIPTORELIN PAMOATE [Suspect]
     Active Substance: TRIPTORELIN PAMOATE
     Indication: Prostate cancer
     Dosage: 11.25 MILLIGRAM, ONCE / 3 MONTHS (11.25 MG,3 M)
     Route: 030
     Dates: start: 20230803, end: 20230803
  4. TRIPTORELIN PAMOATE [Suspect]
     Active Substance: TRIPTORELIN PAMOATE
     Indication: Prostate cancer
     Dosage: 11.25 MILLIGRAM, ONCE / 3 MONTHS (11.25 MG,3 M)
     Route: 030
     Dates: start: 20230511, end: 20230511
  5. TRIPTORELIN PAMOATE [Suspect]
     Active Substance: TRIPTORELIN PAMOATE
     Indication: Prostate cancer
     Dosage: 11.25 MILLIGRAM, ONCE / 3 MONTHS (11.25 MG,3 M)
     Route: 030
     Dates: start: 20231102, end: 20231102

REACTIONS (4)
  - Prostate cancer [Not Recovered/Not Resolved]
  - Inappropriate schedule of product administration [Recovered/Resolved]
  - Labyrinthitis [Unknown]
  - Otitis externa [Unknown]
